FAERS Safety Report 4334046-9 (Version None)
Quarter: 2004Q2

REPORT INFORMATION
  Report Type: 
  Country: None (occurrence: None)
  Receive Date: 20040402
  Receipt Date: 20040323
  Transmission Date: 20050107
  Serious: Yes (Death)
  Sender: FDA-Public Use
  Company Number: 2004020469

PATIENT
  Age: 89 Year
  Sex: Male

DRUGS (5)
  1. AMLODIPINE [Suspect]
     Indication: HYPERTENSION
     Dosage: 5 MG (DAILY), ORAL
     Route: 048
     Dates: start: 20040301, end: 20040301
  2. FELODIPINE [Concomitant]
  3. PANCREATIN TRIPLE STRENGTH CAP [Concomitant]
  4. GLYBURIDE [Concomitant]
  5. HEPARIN CALCIUM [Concomitant]

REACTIONS (3)
  - HAEMOLYSIS [None]
  - JAUNDICE [None]
  - LOSS OF CONSCIOUSNESS [None]
